FAERS Safety Report 6750990-7 (Version None)
Quarter: 2010Q2

REPORT INFORMATION
  Report Type: 
  Country: None (occurrence: None)
  Receive Date: 20100526
  Receipt Date: 20100511
  Transmission Date: 20101027
  Serious: Yes (Other)
  Sender: FDA-Public Use
  Company Number: AUR-APL-2010-01286

PATIENT
  Age: 54 Year
  Sex: Male

DRUGS (14)
  1. FLUOXETINE [Suspect]
     Indication: DEPRESSION
     Dosage: 40MG, DAILY, ORAL
     Route: 048
  2. AMILORIDE HYDROCHLORIDE [Concomitant]
  3. CODEINE SULFATE [Concomitant]
  4. CYCLIZINE [Concomitant]
  5. FUROSEMIDE [Concomitant]
  6. GABAPENTIN [Concomitant]
  7. HYOSCINE HBR HYT [Concomitant]
  8. MORPHINE [Concomitant]
  9. OMEPRAZOLE [Concomitant]
  10. PARACETAMOL [Concomitant]
  11. ROPINIROLE 250UG [Concomitant]
  12. SPIRONOLACTONE [Concomitant]
  13. THIAMINE [Concomitant]
  14. VITAMIN B COMPLEX CAP [Concomitant]

REACTIONS (2)
  - ELECTROCARDIOGRAM QT PROLONGED [None]
  - FALL [None]
